FAERS Safety Report 18097531 (Version 1)
Quarter: 2020Q3

REPORT INFORMATION
  Report Type: Spontaneous
  Country: US (occurrence: US)
  Receive Date: 20200730
  Receipt Date: 20200730
  Transmission Date: 20201103
  Serious: Yes (Hospitalization, Other)
  Sender: FDA-Public Use
  Company Number: None

PATIENT
  Age: 80 Year
  Sex: Male
  Weight: 57.6 kg

DRUGS (4)
  1. REMDESIVIR 100MG VIAL [Suspect]
     Active Substance: REMDESIVIR
     Indication: COVID-19
     Route: 042
     Dates: start: 20200728, end: 20200730
  2. CEFTRIAXONE. [Concomitant]
     Active Substance: CEFTRIAXONE
  3. REMDESIVIR 100MG VIAL [Suspect]
     Active Substance: REMDESIVIR
     Indication: COVID-19
     Route: 042
     Dates: start: 20200727, end: 20200728
  4. DEXAMETHASONE. [Concomitant]
     Active Substance: DEXAMETHASONE

REACTIONS (2)
  - Therapy interrupted [None]
  - Acute kidney injury [None]

NARRATIVE: CASE EVENT DATE: 20200730
